FAERS Safety Report 7109912-1 (Version None)
Quarter: 2010Q4

REPORT INFORMATION
  Report Type: 
  Country: None (occurrence: None)
  Receive Date: 20101116
  Receipt Date: 20101116
  Transmission Date: 20110411
  Serious: Yes (Other)
  Sender: FDA-Public Use
  Company Number: None

PATIENT
  Age: 34 Year
  Sex: Female
  Weight: 65.7716 kg

DRUGS (1)
  1. OB-NATAL ONE 27-1 MG ONE 27-1 MG [Suspect]
     Indication: PREGNANCY
     Dosage: 1 ONCE PER DAY PO
     Route: 048
     Dates: start: 20101111, end: 20101111

REACTIONS (1)
  - RASH GENERALISED [None]
